FAERS Safety Report 23549581 (Version 1)
Quarter: 2024Q1

REPORT INFORMATION
  Report Type: Spontaneous
  Country: IT (occurrence: IT)
  Receive Date: 20240221
  Receipt Date: 20240221
  Transmission Date: 20240410
  Serious: Yes (Hospitalization, Other)
  Sender: FDA-Public Use
  Company Number: None

PATIENT
  Age: 45 Year
  Sex: Female

DRUGS (4)
  1. ZALTRAP [Suspect]
     Active Substance: ZIV-AFLIBERCEPT
     Indication: Adenocarcinoma of colon
     Dosage: 284MG
     Route: 042
     Dates: start: 20240201, end: 20240201
  2. FLUOROURACIL [Suspect]
     Active Substance: FLUOROURACIL
     Indication: Adenocarcinoma of colon
     Dosage: 4056MG
     Route: 042
     Dates: start: 20240201, end: 20240201
  3. FLUOROURACIL [Suspect]
     Active Substance: FLUOROURACIL
     Dosage: 776 MG
     Route: 040
     Dates: start: 20240201, end: 20240201
  4. IRINOTECAN [Suspect]
     Active Substance: IRINOTECAN
     Indication: Adenocarcinoma of colon
     Dosage: 304.24MG
     Route: 042
     Dates: start: 20240201, end: 20240201

REACTIONS (3)
  - Leukopenia [Recovering/Resolving]
  - Oedema peripheral [Recovering/Resolving]
  - Arthralgia [Recovering/Resolving]

NARRATIVE: CASE EVENT DATE: 20240206
